APPROVED DRUG PRODUCT: EDECRIN
Active Ingredient: ETHACRYNIC ACID
Strength: 25MG
Dosage Form/Route: TABLET;ORAL
Application: N016092 | Product #001 | TE Code: AB
Applicant: BAUSCH HEALTH AMERICAS INC
Approved: Approved Prior to Jan 1, 1982 | RLD: Yes | RS: Yes | Type: RX